FAERS Safety Report 13973030 (Version 2)
Quarter: 2020Q4

REPORT INFORMATION
  Report Type: Spontaneous
  Country: US (occurrence: US)
  Receive Date: 20170915
  Receipt Date: 20201216
  Transmission Date: 20210113
  Serious: Yes (Other)
  Sender: FDA-Public Use
  Company Number: US-PFIZER INC-2017058389

PATIENT
  Sex: Female
  Weight: 47.63 kg

DRUGS (5)
  1. TRILEPTAL [Concomitant]
     Active Substance: OXCARBAZEPINE
     Indication: SEIZURE
     Dosage: (STRENGTH 300/5 MG/ML) 5 ML, 2X/DAY (5 ML IN THE MORNING AND 5 ML AT NIGHT)
     Route: 048
  2. LEVOTHYROXINE. [Concomitant]
     Active Substance: LEVOTHYROXINE
     Indication: HYPOTHYROIDISM
     Dosage: 0.075 MG, 1X/DAY (EVERY MORNING)
     Route: 048
  3. GENOTROPIN [Suspect]
     Active Substance: SOMATROPIN
     Indication: PRADER-WILLI SYNDROME
     Dosage: 12 CLICKS ON THE PEN, DAILY
  4. GENOTROPIN [Suspect]
     Active Substance: SOMATROPIN
     Dosage: 0.8 (MOTHER CLICKS IT 8 TIMES), ONCE A DAY
  5. TOPAMAX [Concomitant]
     Active Substance: TOPIRAMATE
     Indication: SEIZURE
     Dosage: 275 MG, DAILY (6 IN THE MORNING AND 5 AT NIGHT)
     Route: 048

REACTIONS (5)
  - Sleep apnoea syndrome [Recovered/Resolved]
  - Device use issue [Unknown]
  - Device issue [Unknown]
  - Drug dose omission by device [Unknown]
  - Device information output issue [Unknown]
